FAERS Safety Report 5027811-6 (Version None)
Quarter: 2006Q2

REPORT INFORMATION
  Report Type: 
  Country: None (occurrence: None)
  Receive Date: 20060614
  Receipt Date: 20060614
  Transmission Date: 20061013
  Serious: Yes (Hospitalization)
  Sender: FDA-Public Use
  Company Number: None

PATIENT
  Age: 46 Year
  Sex: Male
  Weight: 48.0813 kg

DRUGS (2)
  1. ERBITUX [Suspect]
     Indication: NEOPLASM MALIGNANT
     Dosage: 250 MG/M2 DAY 1,8 + 15 IV
     Route: 042
  2. CISPLATIN [Suspect]
     Indication: NEOPLASM MALIGNANT
     Dosage: 75MG/M2 DAY 15 IV
     Route: 042

REACTIONS (10)
  - ABDOMINAL PAIN [None]
  - ACUTE CORONARY SYNDROME [None]
  - ASTHENIA [None]
  - CHEST PAIN [None]
  - CHILLS [None]
  - CONSTIPATION [None]
  - DECREASED APPETITE [None]
  - NAUSEA [None]
  - VOMITING [None]
  - WEIGHT DECREASED [None]
